FAERS Safety Report 6184114-4 (Version None)
Quarter: 2009Q2

REPORT INFORMATION
  Report Type: 
  Country: None (occurrence: None)
  Receive Date: 20090508
  Receipt Date: 20090427
  Transmission Date: 20091009
  Serious: Yes (Hospitalization)
  Sender: FDA-Public Use
  Company Number: PHHY2009JP16028

PATIENT
  Age: 75 Year
  Sex: Female
  Weight: 75 kg

DRUGS (12)
  1. ICL670A ICL+DISTAB [Suspect]
     Indication: IRON OVERLOAD
     Dosage: 500 MG, QD
     Route: 048
     Dates: start: 20080701, end: 20080729
  2. ICL670A ICL+DISTAB [Suspect]
     Indication: MYELODYSPLASTIC SYNDROME
     Dosage: 1000 MG, QD
     Route: 048
     Dates: start: 20080729, end: 20081028
  3. ICL670A ICL+DISTAB [Suspect]
     Dosage: 1250 MG, QD
     Route: 048
     Dates: start: 20081028, end: 20081202
  4. ICL670A ICL+DISTAB [Suspect]
     Dosage: 1000 MG, QD
     Route: 048
     Dates: start: 20081202, end: 20081216
  5. ICL670A ICL+DISTAB [Suspect]
     Dosage: 1000 MG, QD
     Route: 048
     Dates: start: 20090206, end: 20090324
  6. DESFERAL [Concomitant]
     Dosage: 500 MG
     Route: 030
     Dates: end: 20080610
  7. BLOPRESS [Concomitant]
     Dosage: 8 MG
     Route: 048
     Dates: start: 20060612, end: 20080324
  8. ALFAROL [Concomitant]
     Dosage: 2 UG
     Route: 048
     Dates: start: 20061224, end: 20081217
  9. GLAKAY [Concomitant]
     Dosage: 30 MG
     Route: 048
     Dates: start: 20080123, end: 20081217
  10. OMEPRAL [Concomitant]
     Dosage: 20 MG
     Route: 048
     Dates: start: 20061224, end: 20080324
  11. DEPAS [Concomitant]
     Dosage: 1.5 DF
     Route: 048
     Dates: start: 20060612, end: 20081217
  12. DOGMATYL [Concomitant]
     Dosage: 150 DF
     Route: 048
     Dates: start: 20060612, end: 20081217

REACTIONS (3)
  - CHOLECYSTITIS ACUTE [None]
  - DRUG INEFFECTIVE [None]
  - RENAL DISORDER [None]
